FAERS Safety Report 6314369-4 (Version None)
Quarter: 2009Q3

REPORT INFORMATION
  Report Type: 
  Country: None (occurrence: None)
  Receive Date: 20090817
  Receipt Date: 20090817
  Transmission Date: 20100115
  Serious: Yes (Life-Threatening, Other)
  Sender: FDA-Public Use
  Company Number: None

PATIENT
  Age: 76 Year
  Sex: Male
  Weight: 65.7716 kg

DRUGS (2)
  1. VICODIN [Suspect]
     Dosage: ONE TABLET QID PO
     Route: 048
     Dates: start: 20070327, end: 20070403
  2. VICODIN ES [Suspect]
     Dosage: ONE TABLET QID PO, 40 TABLETS A MONTH
     Route: 048
     Dates: start: 20070705, end: 20080107

REACTIONS (1)
  - THERAPEUTIC AGENT TOXICITY [None]
